FAERS Safety Report 5466142-7 (Version None)
Quarter: 2007Q3

REPORT INFORMATION
  Report Type: 
  Country: None (occurrence: None)
  Receive Date: 20070919
  Receipt Date: 20070910
  Transmission Date: 20080115
  Serious: Yes (Life-Threatening)
  Sender: FDA-Public Use
  Company Number: GXKR2007GB07886

PATIENT
  Age: 64 Year
  Sex: Female

DRUGS (2)
  1. ASPIRIN [Suspect]
     Dosage: ORAL
     Route: 048
  2. PLAVIX [Suspect]
     Dosage: ORAL
     Route: 048

REACTIONS (4)
  - ASTHENIA [None]
  - DRUG INTERACTION [None]
  - DYSPNOEA [None]
  - HAEMOGLOBIN DECREASED [None]
